FAERS Safety Report 20348507 (Version 1)
Quarter: 2022Q1

REPORT INFORMATION
  Report Type: Spontaneous
  Country: US (occurrence: US)
  Receive Date: 20220119
  Receipt Date: 20220119
  Transmission Date: 20220423
  Serious: No
  Sender: FDA-Public Use
  Company Number: US-drreddys-SPO/USA/22/0145633

PATIENT
  Sex: Female

DRUGS (3)
  1. LAMOTRIGINE [Interacting]
     Active Substance: LAMOTRIGINE
     Indication: Product used for unknown indication
  2. DIETARY SUPPLEMENT\HERBALS [Interacting]
     Active Substance: DIETARY SUPPLEMENT\HERBALS
     Indication: Hot flush
  3. DIETARY SUPPLEMENT\HERBALS [Interacting]
     Active Substance: DIETARY SUPPLEMENT\HERBALS
     Indication: Night sweats

REACTIONS (1)
  - Drug interaction [Unknown]
